FAERS Safety Report 25269222 (Version 3)
Quarter: 2025Q2

REPORT INFORMATION
  Report Type: Spontaneous
  Country: US (occurrence: US)
  Receive Date: 20250505
  Receipt Date: 20250612
  Transmission Date: 20250717
  Serious: No
  Sender: ROCHE
  Company Number: US-ROCHE-10000255456

PATIENT
  Age: 56 Year
  Sex: Female

DRUGS (1)
  1. XOLAIR [Suspect]
     Active Substance: OMALIZUMAB
     Indication: Asthma
     Route: 065
     Dates: start: 20241125

REACTIONS (6)
  - Device issue [Unknown]
  - Illness [Unknown]
  - Feeling abnormal [Unknown]
  - Drug ineffective [Unknown]
  - Cough [Not Recovered/Not Resolved]
  - Product communication issue [Unknown]

NARRATIVE: CASE EVENT DATE: 20250406
